FAERS Safety Report 10916411 (Version 5)
Quarter: 2015Q2

REPORT INFORMATION
  Report Type: Spontaneous
  Country: LU (occurrence: LU)
  Receive Date: 20150316
  Receipt Date: 20150514
  Transmission Date: 20150821
  Serious: Yes (Hospitalization)
  Sender: FDA-Public Use
  Company Number: LU-BAYER-2015-035474

PATIENT
  Age: 50 Year
  Sex: Male
  Weight: 98 kg

DRUGS (6)
  1. EUTHYROX [Concomitant]
     Active Substance: LEVOTHYROXINE SODIUM
  2. ASPIRIN. [Concomitant]
     Active Substance: ASPIRIN
  3. NEXIAM [Concomitant]
     Active Substance: ESOMEPRAZOLE
  4. XOFIGO [Suspect]
     Active Substance: RADIUM RA-223 DICHLORIDE
     Indication: METASTASES TO BONE
     Dosage: 4930 KBQ, UNK
     Route: 042
     Dates: start: 20150206, end: 20150206
  5. VITAMIN D [Concomitant]
     Active Substance: CHOLECALCIFEROL
  6. XANAX [Concomitant]
     Active Substance: ALPRAZOLAM
     Dosage: 0.5 MG, UNK

REACTIONS (7)
  - Inflammation [Not Recovered/Not Resolved]
  - Off label use [None]
  - Inflammation [Recovering/Resolving]
  - Muscular weakness [Recovering/Resolving]
  - Arteritis [Recovering/Resolving]
  - Asthenia [Recovering/Resolving]
  - Pain [Recovering/Resolving]

NARRATIVE: CASE EVENT DATE: 20150214
